FAERS Safety Report 20349724 (Version 1)
Quarter: 2022Q1

REPORT INFORMATION
  Report Type: Spontaneous
  Country: US (occurrence: US)
  Receive Date: 20220119
  Receipt Date: 20220119
  Transmission Date: 20220423
  Serious: Yes (Other)
  Sender: FDA-Public Use
  Company Number: US-BAUSCH-BL-2022-001347

PATIENT
  Age: 62 Year
  Sex: Female

DRUGS (1)
  1. TRULANCE [Suspect]
     Active Substance: PLECANATIDE
     Indication: Anal stenosis
     Dosage: ON AN AS NEEDED BASIS AND GOT A SINUS INFECTION
     Route: 048
     Dates: start: 2019

REACTIONS (3)
  - Rectal obstruction [Unknown]
  - Otorrhoea [Recovered/Resolved]
  - Sinusitis [Unknown]

NARRATIVE: CASE EVENT DATE: 20210101
